FAERS Safety Report 11852392 (Version 2)
Quarter: 2016Q1

REPORT INFORMATION
  Report Type: Spontaneous
  Country: US (occurrence: US)
  Receive Date: 20151218
  Receipt Date: 20160113
  Transmission Date: 20160526
  Serious: Yes (Other)
  Sender: FDA-Public Use
  Company Number: US-LPDUSPRD-20151020

PATIENT
  Age: 37 Year
  Sex: Female

DRUGS (1)
  1. PROGESTERONE INJECTION (0750-01) [Suspect]
     Active Substance: PROGESTERONE
     Dosage: HAD RECEIVED FOR 2 MONTHS
     Route: 030

REACTIONS (3)
  - Eosinophilic pneumonia [Unknown]
  - Exposure during pregnancy [Recovered/Resolved]
  - Reaction to drug excipients [None]
